FAERS Safety Report 16884064 (Version 1)
Quarter: 2019Q4

REPORT INFORMATION
  Report Type: Spontaneous
  Country: US (occurrence: US)
  Receive Date: 20191004
  Receipt Date: 20191004
  Transmission Date: 20200122
  Serious: No
  Sender: FDA-Public Use
  Company Number: US-TEVA-2019-US-1117977

PATIENT
  Sex: Female

DRUGS (15)
  1. CLOTRIM/BETA [Concomitant]
  2. VITAMIN D3 [Concomitant]
     Active Substance: CHOLECALCIFEROL
  3. COPAXONE [Suspect]
     Active Substance: GLATIRAMER ACETATE
     Indication: MULTIPLE SCLEROSIS
     Dosage: EVERY MONDAY, WEDNESDAY AND FRIDAY
     Route: 058
     Dates: start: 20180316
  4. LORAZEPAM. [Concomitant]
     Active Substance: LORAZEPAM
  5. GABAPENTIN. [Concomitant]
     Active Substance: GABAPENTIN
  6. BUSPIRONE [Concomitant]
     Active Substance: BUSPIRONE HYDROCHLORIDE
  7. VICTOZA [Concomitant]
     Active Substance: LIRAGLUTIDE
  8. DICYCLOMINE [Concomitant]
     Active Substance: DICYCLOMINE HYDROCHLORIDE
  9. IMIQUIMOD. [Concomitant]
     Active Substance: IMIQUIMOD
  10. REBIF [Concomitant]
     Active Substance: INTERFERON BETA-1A
  11. FAMOTIDINE. [Concomitant]
     Active Substance: FAMOTIDINE
  12. FLUVOXAMINE [Concomitant]
     Active Substance: FLUVOXAMINE
  13. HYDROXYZINE [Concomitant]
     Active Substance: HYDROXYZINE HYDROCHLORIDE
  14. DANTROLENE. [Concomitant]
     Active Substance: DANTROLENE SODIUM
  15. DULOXETINE. [Concomitant]
     Active Substance: DULOXETINE

REACTIONS (2)
  - Fall [Unknown]
  - Anxiety [Not Recovered/Not Resolved]
